FAERS Safety Report 5989563-2 (Version None)
Quarter: 2008Q4

REPORT INFORMATION
  Report Type: 
  Country: None (occurrence: None)
  Receive Date: 20081208
  Receipt Date: 20081127
  Transmission Date: 20090506
  Serious: Yes (Death, Hospitalization, Other)
  Sender: FDA-Public Use
  Company Number: 2008-03816

PATIENT
  Age: 53 Year
  Sex: Female
  Weight: 55.5 kg

DRUGS (2)
  1. VELCADE [Suspect]
     Indication: PANCREATIC CARCINOMA
     Dosage: 1.3 MG/M2, IV BOLUS
     Route: 040
     Dates: start: 20080922, end: 20081003
  2. VORINOSTAT (SUBEROYLANILIDE HYDROXAMIC ACID) ORAL DRUG UNSPECIFIED FOR [Suspect]
     Indication: PANCREATIC CARCINOMA
     Dosage: 300 MG, ORAL
     Route: 048
     Dates: start: 20080922, end: 20081002

REACTIONS (12)
  - ABDOMINAL PAIN [None]
  - ASCITES [None]
  - BACTERIAL INFECTION [None]
  - DISEASE PROGRESSION [None]
  - DIZZINESS [None]
  - HYPOALBUMINAEMIA [None]
  - HYPOTENSION [None]
  - MULTI-ORGAN FAILURE [None]
  - NAUSEA [None]
  - PLATELET COUNT DECREASED [None]
  - VOMITING [None]
  - WHITE BLOOD CELL COUNT INCREASED [None]
